FAERS Safety Report 4336402-1 (Version None)
Quarter: 2004Q2

REPORT INFORMATION
  Report Type: 
  Country: None (occurrence: None)
  Receive Date: 20040407
  Receipt Date: 20040326
  Transmission Date: 20050107
  Serious: Yes (Hospitalization)
  Sender: FDA-Public Use
  Company Number: US-JNJFOC-20040303184

PATIENT
  Age: 78 Year
  Sex: Female

DRUGS (5)
  1. REMICADE [Suspect]
     Indication: RHEUMATOID ARTHRITIS
     Dosage: INTRAVENOUS
     Route: 042
     Dates: start: 20030313
  2. PROTONIX (PANTOPRZOLE) [Concomitant]
  3. DARVOCET-N (PROPACET) [Concomitant]
  4. DESYREL [Concomitant]
  5. ZOLOFT [Concomitant]

REACTIONS (13)
  - BLOOD THYROID STIMULATING HORMONE INCREASED [None]
  - CHEST DISCOMFORT [None]
  - CHEST PAIN [None]
  - DISORIENTATION [None]
  - DYSPNOEA [None]
  - GASTROOESOPHAGEAL REFLUX DISEASE [None]
  - HEADACHE [None]
  - HYPERTENSION [None]
  - NAUSEA [None]
  - PALPITATIONS [None]
  - PATHOGEN RESISTANCE [None]
  - RESTLESS LEGS SYNDROME [None]
  - URINARY TRACT INFECTION [None]
